FAERS Safety Report 8175220-3 (Version None)
Quarter: 2012Q1

REPORT INFORMATION
  Report Type: 
  Country: None (occurrence: None)
  Receive Date: 20120229
  Receipt Date: 20111219
  Transmission Date: 20120608
  Serious: No
  Sender: FDA-Public Use
  Company Number: US-MYLANLABS-2011MA017891

PATIENT
  Sex: Male
  Weight: 128.37 kg

DRUGS (1)
  1. DIGOXIN [Suspect]
     Route: 048
     Dates: start: 20070609, end: 20080602

REACTIONS (3)
  - FATIGUE [None]
  - HYPERTENSION [None]
  - CHEST DISCOMFORT [None]
